FAERS Safety Report 11644205 (Version 2)
Quarter: 2015Q4

REPORT INFORMATION
  Report Type: Spontaneous
  Country: JP (occurrence: JP)
  Receive Date: 20151020
  Receipt Date: 20151214
  Transmission Date: 20160304
  Serious: Yes (Death, Other)
  Sender: FDA-Public Use
  Company Number: JP-GLAXOSMITHKLINE-JP2015GSK148526

PATIENT
  Age: 72 Year
  Sex: Male

DRUGS (2)
  1. ZOVIRAX [Suspect]
     Active Substance: ACYCLOVIR
     Indication: HERPES SIMPLEX
     Dosage: 200 MG, 1D
  2. PREDNISOLONE. [Concomitant]
     Active Substance: PREDNISOLONE
     Indication: PEMPHIGOID
     Dosage: 60 MG, UNK

REACTIONS (6)
  - Bacterial infection [Unknown]
  - Histiocytosis haematophagic [Unknown]
  - Altered state of consciousness [Recovered/Resolved]
  - Death [Fatal]
  - Toxic encephalopathy [Unknown]
  - Bronchopulmonary aspergillosis [Unknown]
